FAERS Safety Report 8861018 (Version 1)
Quarter: 2012Q4

REPORT INFORMATION
  Report Type: Spontaneous
  Country: ES (occurrence: None)
  Receive Date: 20121022
  Receipt Date: 20121022
  Transmission Date: 20130627
  Serious: Yes (Hospitalization)
  Sender: FDA-Public Use
  Company Number: 2012P1060854

PATIENT
  Age: 60 Year
  Sex: Female
  Weight: 55.5 kg

DRUGS (3)
  1. EPINEPHRINE [Suspect]
     Indication: ANAPHYLAXIS
     Dosage: 0.5 mg; x1; im
     Route: 030
  2. METRONIDAZOLE [Suspect]
     Indication: DIAGNOSTIC PROCEDURE
     Dosage: 125 mg; x1
  3. SIMVASTATIN [Concomitant]

REACTIONS (9)
  - Anaphylactic reaction [None]
  - Pruritus [None]
  - Rash [None]
  - Dyspnoea [None]
  - Oxygen saturation decreased [None]
  - Tachycardia [None]
  - Vision blurred [None]
  - Ischaemic stroke [None]
  - Cerebral vasoconstriction [None]
